FAERS Safety Report 26112037 (Version 1)
Quarter: 2025Q4

REPORT INFORMATION
  Report Type: Spontaneous
  Country: EU (occurrence: EU)
  Receive Date: 20251202
  Receipt Date: 20251202
  Transmission Date: 20260118
  Serious: Yes (Hospitalization)
  Sender: MYLAN
  Company Number: EU-VITABALANS-440-2025

PATIENT

DRUGS (1)
  1. METFORMIN [Suspect]
     Active Substance: METFORMIN HYDROCHLORIDE
     Indication: Product used for unknown indication
     Dosage: UNK

REACTIONS (5)
  - Euglycaemic diabetic ketoacidosis [Unknown]
  - Renal tubular acidosis [Unknown]
  - Condition aggravated [Unknown]
  - Lactic acidosis [Unknown]
  - Diarrhoea [Unknown]
